FAERS Safety Report 11641317 (Version 1)
Quarter: 2015Q4

REPORT INFORMATION
  Report Type: Spontaneous
  Country: US (occurrence: US)
  Receive Date: 20151019
  Receipt Date: 20151019
  Transmission Date: 20160304
  Serious: Yes (Other)
  Sender: FDA-Public Use
  Company Number: US-ASTRAZENECA-2015SE98922

PATIENT
  Age: 52 Year
  Sex: Male
  Weight: 111.1 kg

DRUGS (6)
  1. ONGLYZA [Suspect]
     Active Substance: SAXAGLIPTIN HYDROCHLORIDE
     Indication: TYPE 2 DIABETES MELLITUS
     Route: 048
     Dates: start: 2013
  2. SYNTHROID [Concomitant]
     Active Substance: LEVOTHYROXINE SODIUM
     Indication: THYROID DISORDER
     Route: 048
  3. RAMIPRIL. [Concomitant]
     Active Substance: RAMIPRIL
     Indication: HYPERTENSION
     Route: 048
  4. GLIMEPIRIDE. [Concomitant]
     Active Substance: GLIMEPIRIDE
     Indication: TYPE 2 DIABETES MELLITUS
     Route: 048
  5. LEVEMIR, INSULIN [Concomitant]
     Indication: TYPE 2 DIABETES MELLITUS
     Route: 058
     Dates: end: 201509
  6. TRICOR [Concomitant]
     Active Substance: FENOFIBRATE
     Route: 048

REACTIONS (5)
  - Coeliac disease [Unknown]
  - Thyroid disorder [Unknown]
  - Blood glucose decreased [Unknown]
  - Diarrhoea [Unknown]
  - Gastric disorder [Unknown]

NARRATIVE: CASE EVENT DATE: 2013
